FAERS Safety Report 5090971-5 (Version None)
Quarter: 2006Q3

REPORT INFORMATION
  Report Type: 
  Country: None (occurrence: None)
  Receive Date: 20060823
  Receipt Date: 20060816
  Transmission Date: 20061208
  Serious: Yes (Hospitalization, Other)
  Sender: FDA-Public Use
  Company Number: HQWYE632517AUG06

PATIENT
  Age: 64 Year
  Sex: Female

DRUGS (5)
  1. ZOSYN [Suspect]
     Indication: INFECTED SKIN ULCER
     Dosage: INTRAVENOUS
     Route: 042
     Dates: start: 20060501, end: 20060623
  2. AVANDAMET [Suspect]
     Indication: DIABETES MELLITUS NON-INSULIN-DEPENDENT
     Dosage: 4/1000 MG TABLET IN AM AND 2/500 MG IN THE PM, ORAL
     Route: 048
     Dates: end: 20060601
  3. UNSPECIFIED ANTIBIOTIC [Concomitant]
  4. FUROSEMIDE [Concomitant]
  5. HYZAAR [Concomitant]

REACTIONS (1)
  - CARDIAC FAILURE CONGESTIVE [None]
